FAERS Safety Report 13205759 (Version 1)
Quarter: 2017Q1

REPORT INFORMATION
  Report Type: Other
  Country: None (occurrence: US)
  Receive Date: 20170209
  Receipt Date: 20170209
  Transmission Date: 20170428
  Serious: Yes (Death)
  Sender: FDA-Public Use
  Company Number: US-ALSI-201700039

PATIENT
  Age: 68 Year
  Sex: Male

DRUGS (1)
  1. OXYGEN USP [Suspect]
     Active Substance: OXYGEN
     Indication: PRODUCT USED FOR UNKNOWN INDICATION
     Route: 055

REACTIONS (3)
  - Intentional product misuse [Fatal]
  - Accident [Fatal]
  - Death [None]
